FAERS Safety Report 11596229 (Version 1)
Quarter: 2015Q4

REPORT INFORMATION
  Report Type: Report from Study
  Country: NL (occurrence: NL)
  Receive Date: 20151006
  Receipt Date: 20151006
  Transmission Date: 20160304
  Serious: Yes (Death, Other)
  Sender: FDA-Public Use
  Company Number: NL-PFIZER INC-2015236638

PATIENT
  Weight: 3.42 kg

DRUGS (4)
  1. PHENYTOIN. [Suspect]
     Active Substance: PHENYTOIN
     Indication: SEIZURE
     Dosage: UNK
     Dates: start: 1998
  2. LIDOCAINE. [Suspect]
     Active Substance: LIDOCAINE
     Dosage: 12 H OF 4 MG/KG/H
     Dates: start: 1998, end: 1998
  3. LIDOCAINE. [Suspect]
     Active Substance: LIDOCAINE
     Dosage: 24 H INFUSION OF 6 MG/KG/H
     Dates: start: 1998, end: 1998
  4. LIDOCAINE. [Suspect]
     Active Substance: LIDOCAINE
     Indication: SEIZURE
     Dosage: BOLUS OF 10 MG/KG IN 10 MIN
     Route: 040
     Dates: start: 1998, end: 1998

REACTIONS (3)
  - Myocardial infarction [Fatal]
  - Cardiac arrest [Fatal]
  - Bradycardia [Fatal]

NARRATIVE: CASE EVENT DATE: 1998
